FAERS Safety Report 6027693-X (Version None)
Quarter: 2009Q1

REPORT INFORMATION
  Report Type: 
  Country: None (occurrence: None)
  Receive Date: 20090105
  Receipt Date: 20081229
  Transmission Date: 20090719
  Serious: Yes (Life-Threatening)
  Sender: FDA-Public Use
  Company Number: GB-ABBOTT-08P-167-0495211-00

PATIENT
  Age: 65 Year
  Sex: Female
  Weight: 81.7 kg

DRUGS (13)
  1. HUMIRA [Suspect]
     Indication: RHEUMATOID ARTHRITIS
     Dates: start: 20080522, end: 20080930
  2. METHOTREXATE [Suspect]
     Indication: RHEUMATOID ARTHRITIS
     Dates: start: 20001101, end: 20080930
  3. ALENDRONIC ACID [Concomitant]
     Indication: PROPHYLAXIS
  4. FOLIC ACID [Concomitant]
     Indication: DRUG USE FOR UNKNOWN INDICATION
  5. PREDNISOLONE [Concomitant]
     Indication: RHEUMATOID ARTHRITIS
  6. CALCICHEW D3 [Concomitant]
     Indication: PROPHYLAXIS
  7. LISINOPRIL [Concomitant]
     Indication: HYPERTENSION
  8. AMLODIPINE [Concomitant]
     Indication: HYPERTENSION
  9. BENDROFLUAZIDE [Concomitant]
     Indication: HYPERTENSION
  10. BISOPROLOL FUMARATE [Concomitant]
     Indication: HYPERTENSION
  11. SIMVASTATIN [Concomitant]
     Indication: HYPERCHOLESTEROLAEMIA
  12. LANSOPRAZOLE [Concomitant]
     Indication: DRUG USE FOR UNKNOWN INDICATION
  13. ASPIRIN [Concomitant]
     Indication: DRUG USE FOR UNKNOWN INDICATION

REACTIONS (13)
  - C-REACTIVE PROTEIN INCREASED [None]
  - CHEST X-RAY ABNORMAL [None]
  - CHILLS [None]
  - COUGH [None]
  - CREPITATIONS [None]
  - DYSPNOEA [None]
  - HYPERSENSITIVITY [None]
  - HYPOXIA [None]
  - MALAISE [None]
  - PNEUMONITIS [None]
  - PYREXIA [None]
  - WHEEZING [None]
  - WHITE BLOOD CELL DISORDER [None]
